FAERS Safety Report 6726258-1 (Version None)
Quarter: 2010Q2

REPORT INFORMATION
  Report Type: 
  Country: None (occurrence: None)
  Receive Date: 20100514
  Receipt Date: 20100512
  Transmission Date: 20101027
  Serious: Yes (Other)
  Sender: FDA-Public Use
  Company Number: US-ROXANE LABORATORIES, INC.-2010-RO-00567RO

PATIENT
  Age: 61 Year
  Sex: Female

DRUGS (3)
  1. METHOTREXATE [Suspect]
     Route: 048
  2. HYDROXYCHLOROQUINE SULFATE [Suspect]
     Dosage: 400 MG
  3. FOLIC ACID [Suspect]

REACTIONS (1)
  - NEUROTOXICITY [None]
